FAERS Safety Report 9034538 (Version 1)
Quarter: 2013Q1

REPORT INFORMATION
  Report Type: Spontaneous
  Country: GB (occurrence: None)
  Receive Date: 20130111
  Receipt Date: 20130111
  Transmission Date: 20140127
  Serious: Yes (Other)
  Sender: FDA-Public Use
  Company Number: GER/UKI/13/0027356

PATIENT
  Age: 42 Year
  Sex: Female
  Weight: 60.77 kg

DRUGS (1)
  1. FLUOXETINE (FLUOXETINE HYDROCHLORIDE) [Suspect]
     Indication: DEPRESSED MOOD
     Route: 048
     Dates: start: 20120116

REACTIONS (1)
  - Loss of libido [None]
